FAERS Safety Report 5921654-4 (Version None)
Quarter: 2008Q4

REPORT INFORMATION
  Report Type: 
  Country: None (occurrence: None)
  Receive Date: 20081016
  Receipt Date: 20081016
  Transmission Date: 20090506
  Serious: Yes (Other)
  Sender: FDA-Public Use
  Company Number: None

PATIENT
  Age: 31 Year
  Sex: Female
  Weight: 77.1115 kg

DRUGS (1)
  1. ZOMIG [Suspect]
     Indication: MIGRAINE
     Dosage: 1 TABLET ONSET OF HEADACHE PO  1 TIME ONLY
     Route: 048
     Dates: start: 20081014, end: 20081014

REACTIONS (9)
  - DIZZINESS [None]
  - DYSGEUSIA [None]
  - DYSPNOEA [None]
  - HYPERSENSITIVITY [None]
  - PAIN [None]
  - PHARYNGEAL OEDEMA [None]
  - SENSATION OF HEAVINESS [None]
  - THROAT TIGHTNESS [None]
  - TREMOR [None]
